FAERS Safety Report 8237883-3 (Version None)
Quarter: 2012Q1

REPORT INFORMATION
  Report Type: 
  Country: None (occurrence: None)
  Receive Date: 20120327
  Receipt Date: 20120320
  Transmission Date: 20120608
  Serious: Yes (Death)
  Sender: FDA-Public Use
  Company Number: GB-UCBSA-053859

PATIENT
  Sex: Male

DRUGS (1)
  1. NEUPRO [Suspect]
     Dosage: 12 MG

REACTIONS (1)
  - DEATH [None]
